FAERS Safety Report 6119353-1 (Version None)
Quarter: 2009Q1

REPORT INFORMATION
  Report Type: 
  Country: None (occurrence: None)
  Receive Date: 20090316
  Receipt Date: 20090311
  Transmission Date: 20090719
  Serious: Yes (Disabling)
  Sender: FDA-Public Use
  Company Number: AU-ASTRAZENECA-2009AP01579

PATIENT
  Age: 59 Year
  Sex: Male
  Weight: 123 kg

DRUGS (5)
  1. CRESTOR [Suspect]
     Indication: DYSLIPIDAEMIA
     Route: 048
     Dates: start: 20090123, end: 20090210
  2. ATACAND [Concomitant]
     Indication: HYPERTENSION
     Route: 048
  3. FLUOXETINE HYDROCHLORIDE [Concomitant]
     Indication: DEPRESSION
     Route: 048
  4. WARFARIN SODIUM [Concomitant]
     Indication: PULMONARY EMBOLISM
     Dosage: 8/10 MG
     Route: 048
  5. UNSPECIFIED [Concomitant]
     Indication: GIARDIASIS

REACTIONS (3)
  - ABDOMINAL DISTENSION [None]
  - DIARRHOEA [None]
  - HEADACHE [None]
